FAERS Safety Report 10151656 (Version 1)
Quarter: 2014Q2

REPORT INFORMATION
  Report Type: Spontaneous
  Country: CN (occurrence: CN)
  Receive Date: 20140505
  Receipt Date: 20140505
  Transmission Date: 20141212
  Serious: Yes (Hospitalization)
  Sender: FDA-Public Use
  Company Number: CN-ROCHE-1390293

PATIENT
  Age: 78 Year
  Sex: Male

DRUGS (2)
  1. AVASTIN [Suspect]
     Indication: COLORECTAL CANCER METASTATIC
     Dosage: FOR 90 MINS
     Route: 041
     Dates: start: 20140402, end: 20140402
  2. AVASTIN [Suspect]
     Dosage: FOR 40 MINS
     Route: 041
     Dates: start: 20140423, end: 20140423

REACTIONS (4)
  - Hypertension [Recovered/Resolved]
  - Faecal incontinence [Recovered/Resolved]
  - Depressed level of consciousness [Recovered/Resolved]
  - Urinary incontinence [Recovered/Resolved]
